FAERS Safety Report 10153615 (Version 2)
Quarter: 2014Q2

REPORT INFORMATION
  Report Type: Spontaneous
  Country: US (occurrence: US)
  Receive Date: 20140505
  Receipt Date: 20140515
  Transmission Date: 20141212
  Serious: Yes (Hospitalization, Other)
  Sender: FDA-Public Use
  Company Number: US-GILEAD-2014-0100360

PATIENT
  Age: 84 Year
  Sex: Male
  Weight: 75.28 kg

DRUGS (12)
  1. RANEXA [Suspect]
     Indication: ANGINA PECTORIS
     Dosage: 1000 MG, UNK
     Dates: end: 20140415
  2. KEPPRA [Concomitant]
  3. IMDUR [Concomitant]
  4. PROTONIX [Concomitant]
  5. PRAVACHOL [Concomitant]
  6. METOPROLOL [Concomitant]
  7. LEVEMIR [Concomitant]
  8. FAMOTIDINE [Concomitant]
  9. FUROSEMIDE [Concomitant]
  10. CLONIDINE [Concomitant]
  11. CILOSTAZOL [Concomitant]
  12. TRADJENTA [Concomitant]

REACTIONS (3)
  - Convulsion [None]
  - Torsade de pointes [Unknown]
  - Electrocardiogram QT prolonged [Unknown]
